FAERS Safety Report 10340082 (Version 1)
Quarter: 2014Q3

REPORT INFORMATION
  Report Type: Spontaneous
  Country: CA (occurrence: CA)
  Receive Date: 20140724
  Receipt Date: 20140724
  Transmission Date: 20150326
  Serious: Yes (Disabling)
  Sender: FDA-Public Use
  Company Number: CA-BAXTER-2014BAX039927

PATIENT
  Age: 29 Year
  Sex: Female

DRUGS (1)
  1. PRISMASOL 0 [Suspect]
     Active Substance: ANHYDROUS DEXTROSE\LACTIC ACID\MAGNESIUM CHLORIDE\POTASSIUM CHLORIDE\SODIUM BICARBONATE\SODIUM CHLORIDE
     Indication: OCCUPATIONAL EXPOSURE TO PRODUCT
     Route: 031

REACTIONS (3)
  - Occupational exposure to product [Unknown]
  - Product container issue [Unknown]
  - Keratitis [Unknown]

NARRATIVE: CASE EVENT DATE: 20140709
